FAERS Safety Report 7318144-3 (Version None)
Quarter: 2011Q1

REPORT INFORMATION
  Report Type: 
  Country: None (occurrence: None)
  Receive Date: 20110228
  Receipt Date: 20110216
  Transmission Date: 20110831
  Serious: No
  Sender: FDA-Public Use
  Company Number: US-BIOGENIDEC-2011BI002116

PATIENT
  Sex: Female

DRUGS (1)
  1. TYSABRI [Suspect]
     Indication: MULTIPLE SCLEROSIS
     Route: 042
     Dates: start: 20110114, end: 20110114

REACTIONS (8)
  - PAIN [None]
  - HEADACHE [None]
  - MENORRHAGIA [None]
  - IRRITABILITY [None]
  - ADVERSE DRUG REACTION [None]
  - VISION BLURRED [None]
  - COGNITIVE DISORDER [None]
  - CHILLS [None]
